FAERS Safety Report 22587735 (Version 3)
Quarter: 2024Q4

REPORT INFORMATION
  Report Type: Spontaneous
  Country: LT (occurrence: LT)
  Receive Date: 20230612
  Receipt Date: 20241121
  Transmission Date: 20250115
  Serious: Yes (Death, Other)
  Sender: AUROBINDO
  Company Number: LT-SAMIL-GLO2023LT003194

PATIENT
  Age: 66 Year
  Sex: Male

DRUGS (7)
  1. MELPHALAN [Suspect]
     Active Substance: MELPHALAN
     Indication: Plasmacytoma
     Dosage: UNK
     Route: 065
  2. BORTEZOMIB [Suspect]
     Active Substance: BORTEZOMIB
     Indication: Plasmacytoma
     Dosage: UNK(DARA-VMP (DARATUMUMAB, BORTEZOMIB, MELPHALAN, AND PREDNISOLONE) REGIMEN)
     Route: 065
  3. CARFILZOMIB [Suspect]
     Active Substance: CARFILZOMIB
     Indication: Plasmacytoma
     Dosage: UNK
     Route: 065
  4. DARATUMUMAB [Suspect]
     Active Substance: DARATUMUMAB
     Indication: Plasmacytoma
     Dosage: UNK(THE DARA-VMP (DARATUMUMAB, BORTEZOMIB, MELPHALAN, AND PREDNISOLONE) REGIMEN)
     Route: 065
  5. DEXAMETHASONE [Suspect]
     Active Substance: DEXAMETHASONE
     Indication: Plasmacytoma
     Dosage: UNK
     Route: 065
  6. LENALIDOMIDE [Suspect]
     Active Substance: LENALIDOMIDE
     Indication: Plasmacytoma
     Dosage: UNK
     Route: 065
  7. PREDNISOLONE [Suspect]
     Active Substance: PREDNISOLONE
     Indication: Plasmacytoma
     Dosage: UNK(DARA-VMP (DARATUMUMAB, BORTEZOMIB, MELPHALAN, AND PREDNISOLONE) REGIMEN)
     Route: 065

REACTIONS (5)
  - Death [Fatal]
  - Plasmacytoma [Unknown]
  - COVID-19 [Recovered/Resolved]
  - Drug ineffective [Unknown]
  - Off label use [Unknown]
